FAERS Safety Report 12232172 (Version 8)
Quarter: 2017Q3

REPORT INFORMATION
  Report Type: Report from Study
  Country: CA (occurrence: CA)
  Receive Date: 20160401
  Receipt Date: 20170729
  Transmission Date: 20171127
  Serious: Yes (Hospitalization)
  Sender: FDA-Public Use
  Company Number: CA-VALIDUS PHARMACEUTICALS LLC-CA-2016VAL000731

PATIENT

DRUGS (7)
  1. SANDOSTATIN LAR DEPOT [Suspect]
     Active Substance: OCTREOTIDE ACETATE
     Dosage: 40 MG, QMO (EVERY 4 WEEKS)
     Route: 030
  2. SANDOSTATIN LAR DEPOT [Suspect]
     Active Substance: OCTREOTIDE ACETATE
     Indication: COLON CANCER METASTATIC
     Dosage: 30 MG, QMO (EVERY 4 WEEKS)
     Route: 030
     Dates: start: 20150715
  3. SANDOSTATIN LAR DEPOT [Suspect]
     Active Substance: OCTREOTIDE ACETATE
     Dosage: 40 MG, QMO (EVERY 4 WEEKS)
     Route: 030
     Dates: start: 20160530
  4. SANDOSTATIN [Suspect]
     Active Substance: OCTREOTIDE ACETATE
     Indication: COLON CANCER METASTATIC
     Dosage: 750 ?G, BID (TO CONTINUE 2 WEEKS POST FIRST LAR)
     Route: 058
     Dates: start: 201503, end: 201507
  5. AVASTIN [Concomitant]
     Active Substance: BEVACIZUMAB
     Indication: PRODUCT USED FOR UNKNOWN INDICATION
     Dosage: UNK
     Dates: start: 20170717
  6. FOLFOX [Concomitant]
     Active Substance: FLUOROURACIL\LEUCOVORIN CALCIUM\OXALIPLATIN
     Indication: PRODUCT USED FOR UNKNOWN INDICATION
     Dosage: UNK
     Dates: start: 20170717
  7. METOPROLOL TARTRATE. [Suspect]
     Active Substance: METOPROLOL TARTRATE
     Indication: PRODUCT USED FOR UNKNOWN INDICATION
     Dosage: 25 MG, BID
     Route: 048

REACTIONS (21)
  - Colon cancer metastatic [Unknown]
  - Blood pressure increased [Unknown]
  - Fatigue [Unknown]
  - Malignant neoplasm progression [Unknown]
  - Diarrhoea [Unknown]
  - Injection site dryness [Unknown]
  - Malaise [Unknown]
  - Injection site pain [Unknown]
  - Dehydration [Unknown]
  - Dizziness [Unknown]
  - Body temperature decreased [Unknown]
  - Injection site erythema [Unknown]
  - Heart rate decreased [Unknown]
  - Drug effect decreased [Unknown]
  - Gastrointestinal inflammation [Unknown]
  - Blood pressure systolic increased [Unknown]
  - Vertigo [Unknown]
  - White blood cell count decreased [Unknown]
  - Purulent discharge [Unknown]
  - Nausea [Unknown]
  - Asthenia [Unknown]

NARRATIVE: CASE EVENT DATE: 2015
